FAERS Safety Report 8439924-7 (Version None)
Quarter: 2012Q2

REPORT INFORMATION
  Report Type: 
  Country: None (occurrence: None)
  Receive Date: 20120611
  Receipt Date: 20120611
  Transmission Date: 20120825
  Serious: Yes (Disabling)
  Sender: FDA-Public Use
  Company Number: None

PATIENT
  Age: 48 Year
  Sex: Female

DRUGS (1)
  1. CLONIDINE HCL [Suspect]
     Indication: HYPERTENSION
     Dosage: 0.02 MG ONCE- TWICE A DAY PO
     Route: 048
     Dates: start: 20120604, end: 20120608

REACTIONS (5)
  - ABDOMINAL DISTENSION [None]
  - FEELING ABNORMAL [None]
  - FLUID RETENTION [None]
  - HYPERHIDROSIS [None]
  - DEPRESSED LEVEL OF CONSCIOUSNESS [None]
